FAERS Safety Report 8987489 (Version 3)
Quarter: 2013Q3

REPORT INFORMATION
  Report Type: Report from Study
  Country: GB (occurrence: GB)
  Receive Date: 20121227
  Receipt Date: 20130819
  Transmission Date: 20140515
  Serious: Yes (Hospitalization)
  Sender: FDA-Public Use
  Company Number: GB-ROCHE-1162477

PATIENT
  Age: 45 Year
  Sex: Female
  Weight: 64.5 kg

DRUGS (5)
  1. BLINDED PERTUZUMAB [Suspect]
     Indication: BREAST CANCER
     Route: 042
     Dates: start: 20120914
  2. TRASTUZUMAB [Suspect]
     Indication: BREAST CANCER
     Route: 042
     Dates: start: 20120914
  3. DOCETAXEL [Suspect]
     Indication: BREAST CANCER
     Route: 042
     Dates: start: 20120914
  4. CARBOPLATIN [Suspect]
     Indication: BREAST CANCER
     Route: 042
     Dates: start: 20120914
  5. PIRITON [Concomitant]
     Route: 065
     Dates: start: 20120922, end: 20120922

REACTIONS (1)
  - Neutropenic sepsis [Recovered/Resolved]
